FAERS Safety Report 9582741 (Version 1)
Quarter: 2013Q4

REPORT INFORMATION
  Report Type: Spontaneous
  Country: US (occurrence: US)
  Receive Date: 20131002
  Receipt Date: 20131002
  Transmission Date: 20140711
  Serious: No
  Sender: FDA-Public Use
  Company Number: US-AMGEN-USASP2013042530

PATIENT
  Age: 50 Year
  Sex: Female
  Weight: 113.38 kg

DRUGS (10)
  1. ENBREL [Suspect]
     Indication: PRODUCT USED FOR UNKNOWN INDICATION
     Dosage: 50 MG, QWK
     Route: 058
  2. PREDNISONE [Concomitant]
     Dosage: 10 MG, UNK
     Route: 048
  3. SYNTHROID [Concomitant]
     Dosage: 25 MUG, UNK
     Route: 048
  4. CELEXA                             /00582602/ [Concomitant]
     Dosage: 10 MG, UNK
     Route: 048
  5. TRAZODONE [Concomitant]
     Dosage: 150 MG, UNK
     Route: 048
  6. VITAMIN C                          /00008001/ [Concomitant]
     Dosage: 500 MG, UNK
     Route: 048
  7. FOLIC ACID [Concomitant]
     Dosage: UNK
     Route: 048
  8. NORCO [Concomitant]
     Dosage: 5-325 MG, UNK
     Route: 048
  9. IBUPROFEN [Concomitant]
     Dosage: 200 MG, UNK
     Route: 048
  10. METHOTREXATE [Concomitant]
     Dosage: 20 MG, UNK

REACTIONS (1)
  - Hypoaesthesia [Unknown]
